FAERS Safety Report 10565158 (Version 1)
Quarter: 2014Q4

REPORT INFORMATION
  Report Type: Spontaneous
  Country: US (occurrence: None)
  Receive Date: 20141104
  Receipt Date: 20141104
  Transmission Date: 20150529
  Serious: Yes (Hospitalization)
  Sender: FDA-Public Use
  Company Number: None

PATIENT
  Age: 61 Year
  Sex: Male
  Weight: 73.6 kg

DRUGS (2)
  1. IMIPENEM AND CILASTATIN [Suspect]
     Active Substance: CILASTATIN SODIUM\IMIPENEM
     Indication: ABDOMINAL ABSCESS
     Route: 042
     Dates: start: 20140610, end: 20140611
  2. MEROPENEM. [Suspect]
     Active Substance: MEROPENEM
     Route: 042
     Dates: start: 20140524, end: 20140530

REACTIONS (12)
  - Large intestine perforation [None]
  - Post procedural complication [None]
  - Dyspnoea [None]
  - Gastrointestinal neoplasm [None]
  - Diarrhoea [None]
  - Streptococcus test positive [None]
  - Enterococcus test positive [None]
  - Pyrexia [None]
  - Clostridium difficile colitis [None]
  - Abdominal abscess [None]
  - Gastrointestinal haemorrhage [None]
  - Pleural effusion [None]

NARRATIVE: CASE EVENT DATE: 20140619
